FAERS Safety Report 22051507 (Version 2)
Quarter: 2023Q1

REPORT INFORMATION
  Report Type: Spontaneous
  Country: US (occurrence: US)
  Receive Date: 20230301
  Receipt Date: 20230328
  Transmission Date: 20230418
  Serious: Yes (Other)
  Sender: FDA-Public Use
  Company Number: US-BRISTOL-MYERS SQUIBB COMPANY-2023-030070

PATIENT
  Age: 78 Year
  Sex: Female
  Weight: 88 kg

DRUGS (20)
  1. REVLIMID [Suspect]
     Active Substance: LENALIDOMIDE
     Indication: Myelodysplastic syndrome
     Dosage: QD X 14 DAYS
     Route: 048
     Dates: start: 20230121
  2. REVLIMID [Suspect]
     Active Substance: LENALIDOMIDE
     Route: 048
     Dates: start: 20221128, end: 20221229
  3. REVLIMID [Suspect]
     Active Substance: LENALIDOMIDE
     Route: 048
     Dates: start: 20221229, end: 20230206
  4. REVLIMID [Suspect]
     Active Substance: LENALIDOMIDE
     Dosage: REFILL NO CHANGES
     Route: 048
     Dates: start: 20230206, end: 20230223
  5. REVLIMID [Suspect]
     Active Substance: LENALIDOMIDE
     Dosage: CYCLE CHANGE
     Route: 048
     Dates: start: 20230223, end: 20230320
  6. REVLIMID [Suspect]
     Active Substance: LENALIDOMIDE
     Dosage: CYCLE CHANGE
     Route: 048
     Dates: start: 20230320
  7. LOSARTAN POTASSIUM [Concomitant]
     Active Substance: LOSARTAN POTASSIUM
     Indication: Product used for unknown indication
     Route: 048
     Dates: start: 20221128
  8. OMEPRAZOLE [Concomitant]
     Active Substance: OMEPRAZOLE
     Indication: Product used for unknown indication
     Dosage: DELAYED RELEASE
     Route: 048
     Dates: start: 20221208
  9. VITAMIN D3 [Concomitant]
     Active Substance: CHOLECALCIFEROL
     Indication: Product used for unknown indication
     Route: 048
  10. ARANESP [Concomitant]
     Active Substance: DARBEPOETIN ALFA
     Indication: Product used for unknown indication
     Dosage: EVERY OTHER DAY/ INJECTION
     Dates: start: 20221208
  11. ESTRADIOL [Concomitant]
     Active Substance: ESTRADIOL
     Indication: Product used for unknown indication
     Route: 048
     Dates: start: 20221128, end: 20221208
  12. DULOXETINE HYDROCHLORIDE [Concomitant]
     Active Substance: DULOXETINE HYDROCHLORIDE
     Indication: Product used for unknown indication
     Dosage: DELAYED
     Route: 048
     Dates: start: 20221128, end: 20221208
  13. ERGOCALCIFEROL [Concomitant]
     Active Substance: ERGOCALCIFEROL
     Indication: Product used for unknown indication
     Route: 048
     Dates: start: 20221128
  14. PHENAZOPYRIDINE HCL [Concomitant]
     Active Substance: PHENAZOPYRIDINE HYDROCHLORIDE
     Indication: Product used for unknown indication
     Route: 048
     Dates: start: 20221128, end: 20221208
  15. TYLENOL EXTRA STRENGTH [Concomitant]
     Active Substance: ACETAMINOPHEN
     Indication: Product used for unknown indication
     Dosage: PM
     Route: 048
     Dates: start: 20221208
  16. SODIUM CHLORIDE [Concomitant]
     Active Substance: SODIUM CHLORIDE
     Indication: Product used for unknown indication
     Dosage: PM
     Route: 045
     Dates: start: 20221208
  17. CALCIUM [Concomitant]
     Active Substance: CALCIUM
     Indication: Product used for unknown indication
     Dosage: 1200-1000
     Route: 048
     Dates: start: 20230221
  18. CHILDRENS BENADRYL ALLERGY [DIPHENHYDRAMINE CITRATE] [Concomitant]
     Indication: Product used for unknown indication
     Route: 048
     Dates: start: 20230221
  19. HYDROCORTISONE [Concomitant]
     Active Substance: HYDROCORTISONE
     Indication: Product used for unknown indication
     Dosage: EXTERNAL CREAM
     Route: 048
     Dates: start: 20230223
  20. BENADRYL ITCH STOPPING CREAM [Concomitant]
     Indication: Product used for unknown indication
     Dosage: 1 - 0.1 % EXTERNAL CREAM
     Route: 048
     Dates: start: 20230223

REACTIONS (8)
  - Neutropenia [Unknown]
  - Rash [Unknown]
  - Urticaria [Unknown]
  - Pruritus [Not Recovered/Not Resolved]
  - Off label use [Unknown]
  - Decreased appetite [Unknown]
  - Weight decreased [Unknown]
  - Diarrhoea [Unknown]

NARRATIVE: CASE EVENT DATE: 20230317
